FAERS Safety Report 14439667 (Version 1)
Quarter: 2018Q1

REPORT INFORMATION
  Report Type: Spontaneous
  Country: FR (occurrence: FR)
  Receive Date: 20180125
  Receipt Date: 20180125
  Transmission Date: 20180509
  Serious: Yes (Death)
  Sender: FDA-Public Use
  Company Number: FR-JNJFOC-20180129098

PATIENT
  Age: 52 Year
  Sex: Female

DRUGS (7)
  1. LOXAPAC [Suspect]
     Active Substance: LOXAPINE
     Indication: BIPOLAR DISORDER
     Route: 048
     Dates: end: 20180103
  2. TRAMADOL HYDROCHLORIDE. [Suspect]
     Active Substance: TRAMADOL HYDROCHLORIDE
     Indication: BIPOLAR DISORDER
     Route: 048
  3. LEPTICUR [Suspect]
     Active Substance: TROPATEPINE HYDROCHLORIDE
     Indication: BIPOLAR DISORDER
     Route: 048
     Dates: end: 20180103
  4. DEPAKINE [Suspect]
     Active Substance: VALPROATE SODIUM
     Indication: BIPOLAR DISORDER
     Route: 048
  5. SERESTA [Suspect]
     Active Substance: OXAZEPAM
     Indication: BIPOLAR DISORDER
     Route: 048
  6. BRINTELLIX [Suspect]
     Active Substance: VORTIOXETINE HYDROBROMIDE
     Indication: BIPOLAR DISORDER
     Route: 048
     Dates: end: 20180103
  7. VALDOXAN [Suspect]
     Active Substance: AGOMELATINE
     Indication: BIPOLAR DISORDER
     Route: 048
     Dates: end: 20180103

REACTIONS (1)
  - Cholestasis [Fatal]

NARRATIVE: CASE EVENT DATE: 20180102
